FAERS Safety Report 9760369 (Version 2)
Quarter: 2015Q3

REPORT INFORMATION
  Report Type: Spontaneous
  Country: US (occurrence: US)
  Receive Date: 20131216
  Receipt Date: 20150806
  Transmission Date: 20151125
  Serious: No
  Sender: FDA-Public Use
  Company Number: US-GILEAD-2010-0029613

PATIENT
  Age: 50 Year
  Sex: Female
  Weight: 49.44 kg

DRUGS (19)
  1. OXYGEN. [Concomitant]
     Active Substance: OXYGEN
  2. LEVOTHROID [Concomitant]
     Active Substance: LEVOTHYROXINE SODIUM
  3. LETAIRIS [Suspect]
     Active Substance: AMBRISENTAN
     Indication: PULMONARY ARTERIAL HYPERTENSION
     Route: 048
     Dates: start: 20100519
  4. SYMBICORT [Concomitant]
     Active Substance: BUDESONIDE\FORMOTEROL FUMARATE DIHYDRATE
  5. CELEXA [Concomitant]
     Active Substance: CITALOPRAM HYDROBROMIDE
  6. IPRATROPIUM [Concomitant]
     Active Substance: IPRATROPIUM
  7. XANAX [Concomitant]
     Active Substance: ALPRAZOLAM
  8. NOVOLOG [Concomitant]
     Active Substance: INSULIN ASPART
  9. ALTACE [Concomitant]
     Active Substance: RAMIPRIL
  10. LEVEMIR [Concomitant]
     Active Substance: INSULIN DETEMIR
  11. POTASSIUM CHLORIDE. [Concomitant]
     Active Substance: POTASSIUM CHLORIDE
  12. ASPIRIN. [Concomitant]
     Active Substance: ASPIRIN
  13. PROCARDIA XL [Concomitant]
     Active Substance: NIFEDIPINE
  14. ALBUTEROL. [Concomitant]
     Active Substance: ALBUTEROL
  15. LISINOPRIL. [Concomitant]
     Active Substance: LISINOPRIL
  16. DOCUSATE SODIUM. [Concomitant]
     Active Substance: DOCUSATE SODIUM
  17. DIGOXIN. [Concomitant]
     Active Substance: DIGOXIN
  18. MUCINEX [Concomitant]
     Active Substance: GUAIFENESIN
  19. MULTIVITAMIN [Concomitant]
     Active Substance: VITAMINS

REACTIONS (1)
  - Swelling face [Unknown]
